FAERS Safety Report 11108181 (Version 2)
Quarter: 2015Q2

REPORT INFORMATION
  Report Type: Report from Study
  Country: US (occurrence: US)
  Receive Date: 20150512
  Receipt Date: 20150624
  Transmission Date: 20150821
  Serious: Yes (Hospitalization)
  Sender: FDA-Public Use
  Company Number: US-ABBVIE-15P-163-1385716-00

PATIENT
  Age: 66 Year
  Weight: 87.17 kg

DRUGS (12)
  1. HUMIRA [Suspect]
     Active Substance: ADALIMUMAB
     Indication: PSORIASIS
     Route: 058
     Dates: start: 20090320, end: 20090320
  2. VITAMIN D [Concomitant]
     Active Substance: CHOLECALCIFEROL
     Indication: OSTEOPENIA
     Dates: start: 1998
  3. HUMIRA [Suspect]
     Active Substance: ADALIMUMAB
     Route: 058
  4. MAGNESIUM [Concomitant]
     Active Substance: MAGNESIUM
     Indication: OSTEOPENIA
     Dates: start: 1998
  5. DARVOCET-N 100 [Concomitant]
     Active Substance: ACETAMINOPHEN\PROPOXYPHENE NAPSYLATE
     Indication: PAIN
     Dosage: 100/650MG
     Dates: start: 200809
  6. CALCIUM [Concomitant]
     Active Substance: CALCIUM
     Indication: OSTEOPENIA
     Dates: start: 1998
  7. SIMVASTATIN. [Concomitant]
     Active Substance: SIMVASTATIN
     Indication: LIPIDS INCREASED
     Dates: start: 200709
  8. PREMARIN [Concomitant]
     Active Substance: ESTROGENS, CONJUGATED
     Indication: HORMONE REPLACEMENT THERAPY
     Dates: start: 2003
  9. HUMIRA [Suspect]
     Active Substance: ADALIMUMAB
     Route: 058
     Dates: start: 20101019
  10. HUMIRA [Suspect]
     Active Substance: ADALIMUMAB
     Route: 058
  11. LISINOPRIL AND HYDROCHLOROTHIAZIDE [Concomitant]
     Active Substance: HYDROCHLOROTHIAZIDE\LISINOPRIL
     Indication: HYPERTENSION
     Dosage: 20/12.5MG
     Dates: start: 1995
  12. ETODOLAC. [Concomitant]
     Active Substance: ETODOLAC
     Indication: PSORIATIC ARTHROPATHY
     Dates: start: 2008

REACTIONS (1)
  - Joint injury [Recovered/Resolved]

NARRATIVE: CASE EVENT DATE: 20150126
